FAERS Safety Report 22901986 (Version 7)
Quarter: 2024Q1

REPORT INFORMATION
  Report Type: Spontaneous
  Country: US (occurrence: US)
  Receive Date: 20230904
  Receipt Date: 20240103
  Transmission Date: 20240410
  Serious: Yes (Hospitalization, Other)
  Sender: FDA-Public Use
  Company Number: US-SA-SAC20230901000637

PATIENT
  Age: 29 Year
  Sex: Female

DRUGS (3)
  1. DUPIXENT [Suspect]
     Active Substance: DUPILUMAB
     Indication: Idiopathic urticaria
     Dosage: UNK UNK, 1X
     Route: 058
     Dates: start: 202207, end: 202207
  2. DUPIXENT [Suspect]
     Active Substance: DUPILUMAB
     Indication: Asthma
     Dosage: 300 MG, QOW
     Route: 058
     Dates: start: 202208
  3. TAKHZYRO [Concomitant]
     Active Substance: LANADELUMAB-FLYO
     Dosage: UNK

REACTIONS (15)
  - Hospitalisation [Recovered/Resolved]
  - Laryngeal oedema [Recovered/Resolved]
  - Peripheral swelling [Recovered/Resolved]
  - Condition aggravated [Recovered/Resolved]
  - Mouth swelling [Unknown]
  - Condition aggravated [Unknown]
  - Swollen tongue [Unknown]
  - Condition aggravated [Unknown]
  - Abdominal distension [Recovered/Resolved]
  - Condition aggravated [Recovered/Resolved]
  - Eye swelling [Recovered/Resolved]
  - Swelling face [Unknown]
  - Condition aggravated [Unknown]
  - Pain [Recovered/Resolved]
  - Product use in unapproved indication [Unknown]

NARRATIVE: CASE EVENT DATE: 20220701
